FAERS Safety Report 22017475 (Version 3)
Quarter: 2023Q2

REPORT INFORMATION
  Report Type: Report from Study
  Country: PT (occurrence: PT)
  Receive Date: 20230221
  Receipt Date: 20230410
  Transmission Date: 20230722
  Serious: Yes (Other)
  Sender: FDA-Public Use
  Company Number: PT-ABBVIE-4311510

PATIENT
  Sex: Male

DRUGS (19)
  1. CARBIDOPA\LEVODOPA [Suspect]
     Active Substance: CARBIDOPA\LEVODOPA
     Indication: Parkinson^s disease
     Dosage: 20 MG + 5 MG?FREQUENCY TEXT: MORNIN:10.9CC;MAINTEN:2.7CC/H;EXTRA:1 CC
     Route: 050
     Dates: start: 2023
  2. CARBIDOPA\LEVODOPA [Suspect]
     Active Substance: CARBIDOPA\LEVODOPA
     Dosage: 20 MG + 5 MG?FREQUENCY TEXT: MORNIN:10.2CC;MAINTEN:1.8CC/H;EXTRA:1 CC
     Route: 050
     Dates: end: 2023
  3. CARBIDOPA\LEVODOPA [Suspect]
     Active Substance: CARBIDOPA\LEVODOPA
     Dosage: 20 MG + 5 MG?FREQUENCY TEXT: MORNIN:10.5CC;MAINTEN:3.7CC/H;EXTRA:1 CC
     Route: 050
     Dates: start: 20210927
  4. MIRTAZAPINE [Concomitant]
     Active Substance: MIRTAZAPINE
     Indication: Product used for unknown indication
     Dosage: 1 TABLET?FORM STRENGTH: 30 MILLIGRAM?FREQUENCY TEXT: AT BEDTIME?START DATE TEXT: BEFORE DUODOPA
     Route: 048
  5. ATORVASTATIN [Concomitant]
     Active Substance: ATORVASTATIN
     Indication: Product used for unknown indication
     Dosage: 1 TABLET?FORM STRENGTH: 20 MILLIGRAM?FREQUENCY TEXT: AT BREAKFAST?START DATE TEXT: BEFORE DUODOPA
     Route: 048
  6. VENLAFAXINA MEPHA [Concomitant]
     Indication: Product used for unknown indication
     Dosage: 1 TABLET?FORM STRENGTH: 37.5 MILLIGRAM?FREQUENCY TEXT: AT BREAKFAST?START DATE TEXT: BEFORE DUODOPA
     Route: 048
  7. Seine extract [Concomitant]
     Indication: Product used for unknown indication
     Dosage: 2 TABLET?FORM STRENGTH: 12 MILLIGRAM?FREQUENCY TEXT: AT BEDTIME
     Route: 048
  8. IRON POLYMALTOSE [Concomitant]
     Active Substance: IRON POLYMALTOSE
     Indication: Product used for unknown indication
     Dosage: 1 TABLET?FORM STRENGTH: 375 MILLIGRAM?FREQUENCY TEXT: AT BREAKFAST?START DATE TEXT: BEFORE DUODOPA
     Route: 048
  9. CHOLECALCIFEROL [Concomitant]
     Active Substance: CHOLECALCIFEROL
     Indication: Product used for unknown indication
     Dosage: 3 DROP?FORM STRENGTH: 0.5 MILLIGRAM/MILLILITERS?FREQUENCY TEXT: AT BREAKFAST?START DATE TEXT: BEF...
     Route: 048
  10. PANTOPRAZOLE [Concomitant]
     Active Substance: PANTOPRAZOLE
     Indication: Product used for unknown indication
     Dosage: 1 TABLET?FORM STRENGTH: 40 MILLIGRAM?FREQUENCY TEXT: IN FASTING?START DATE TEXT: BEFORE DUODOPA
     Route: 048
  11. MEMANTINE [Concomitant]
     Active Substance: MEMANTINE
     Indication: Product used for unknown indication
     Dosage: 2 TABLET?FORM STRENGTH: 10 MILLIGRAM?FREQUENCY TEXT: AT BREAKFAST AND DINNER?START DATE TEXT: BEF...
     Route: 048
  12. DOMPERIDONE [Concomitant]
     Active Substance: DOMPERIDONE
     Indication: Product used for unknown indication
     Dosage: 6 TABLET?FORM STRENGTH: 10 MILLIGRAM?FREQUENCY TEXT: 2 TABLETS AT BREAKFAST,LUNCH AND DINNER?STAR...
     Route: 048
  13. MIDODRINE [Concomitant]
     Active Substance: MIDODRINE
     Indication: Product used for unknown indication
     Dosage: 5 TABLET?FORM STRENGTH: 2.5 MILLIGRAM?FREQUENCY TEXT: AT BREAKFAST?START DATE TEXT: BEFORE DUODOPA
     Route: 048
  14. SUCRALFATE [Concomitant]
     Active Substance: SUCRALFATE
     Indication: Product used for unknown indication
     Dosage: 1000MG/5ML?FREQUENCY TEXT: 1 SUSPENSION BREAKFAST, LUNCH AND DINNER?START DATE TEXT: BEFORE DUODOPA
     Route: 048
  15. Complexo b [Concomitant]
     Indication: Product used for unknown indication
     Dosage: 1 TABLET
     Route: 048
  16. BISOPROLOL [Concomitant]
     Active Substance: BISOPROLOL
     Indication: Product used for unknown indication
     Dosage: 1 TABLET?FORM STRENGTH: 2.5 MILLIGRAM?FREQUENCY TEXT: AT BREAKFAST?START DATE TEXT: BEFORE DUODOPA
     Route: 048
  17. ONDANSETRON [Concomitant]
     Active Substance: ONDANSETRON
     Indication: Product used for unknown indication
     Dosage: 2 TABLET?FORM STRENGTH: 4 MILLIGRAM?FREQUENCY TEXT: AT BREAKFAST AND AT DINNER?START DATE TEXT: B...
     Route: 048
  18. DULCOGOTAS [Concomitant]
     Indication: Product used for unknown indication
     Dosage: 10 DROP?FORM STRENGTH: 7.5 MILLIGRAM/MILLILITERS?FREQUENCY TEXT: AT BEDTIME?START DATE TEXT: BEFO...
     Route: 048
  19. DULCOGOTAS [Concomitant]
     Indication: Product used for unknown indication
     Dosage: 10 DROP
     Route: 048

REACTIONS (9)
  - Embolic stroke [Recovered/Resolved]
  - Hemiparesis [Recovered/Resolved]
  - Dysarthria [Recovering/Resolving]
  - Weight decreased [Recovering/Resolving]
  - Dyskinesia [Recovering/Resolving]
  - Food refusal [Recovered/Resolved]
  - Dysphagia [Recovered/Resolved]
  - Mobility decreased [Recovering/Resolving]
  - Food refusal [Not Recovered/Not Resolved]

NARRATIVE: CASE EVENT DATE: 20230101
